FAERS Safety Report 8375507-5 (Version None)
Quarter: 2012Q1

REPORT INFORMATION
  Report Type: 
  Country: None (occurrence: None)
  Receive Date: 20120323
  Receipt Date: 20110412
  Transmission Date: 20120608
  Serious: Yes (Other)
  Sender: FDA-Public Use
  Company Number: 163-21880-11020592

PATIENT
  Age: 63 Year
  Sex: Male
  Weight: 94.8018 kg

DRUGS (5)
  1. REVLIMID [Suspect]
     Indication: MULTIPLE MYELOMA
     Dosage: 25 MG, DAILY, PO, 5-15 MG, DAILY, PO, 15MG, DAYS 1-21, PO
     Route: 048
     Dates: start: 20081101
  2. REVLIMID [Suspect]
     Indication: MULTIPLE MYELOMA
     Dosage: 25 MG, DAILY, PO, 5-15 MG, DAILY, PO, 15MG, DAYS 1-21, PO
     Route: 048
     Dates: start: 20091101
  3. DEXAMETHASONE [Concomitant]
  4. CIPROFLOXACIN [Concomitant]
  5. ZOMETA [Concomitant]

REACTIONS (4)
  - DIARRHOEA [None]
  - CATARACT [None]
  - ARTHRALGIA [None]
  - LABORATORY TEST ABNORMAL [None]
